FAERS Safety Report 7731191-2 (Version None)
Quarter: 2011Q3

REPORT INFORMATION
  Report Type: 
  Country: None (occurrence: None)
  Receive Date: 20110906
  Receipt Date: 20110830
  Transmission Date: 20111222
  Serious: Yes (Disabling)
  Sender: FDA-Public Use
  Company Number: PHHY2011CH77510

PATIENT
  Sex: Female

DRUGS (3)
  1. VENLAFAXINE [Suspect]
     Indication: DEPRESSION
     Dosage: 75 MG, UNK
     Route: 048
     Dates: start: 20080401, end: 20101101
  2. VENLAFAXINE [Suspect]
     Dosage: 37.5 MG, UNK
     Route: 048
     Dates: start: 20101101, end: 20110401
  3. EFFORTIL [Concomitant]

REACTIONS (7)
  - TREMOR [None]
  - DRUG WITHDRAWAL SYNDROME [None]
  - APALLIC SYNDROME [None]
  - DECREASED APPETITE [None]
  - HYPOTONIA [None]
  - ANXIETY [None]
  - NERVOUSNESS [None]
